FAERS Safety Report 13382080 (Version 8)
Quarter: 2017Q2

REPORT INFORMATION
  Report Type: Spontaneous
  Country: AU (occurrence: AU)
  Receive Date: 20170329
  Receipt Date: 20170505
  Transmission Date: 20170830
  Serious: Yes (Hospitalization, Other)
  Sender: FDA-Public Use
  Company Number: PHHY2017AU044739

PATIENT
  Sex: Male

DRUGS (7)
  1. AZITHROMYCIN ANHYDROUS. [Suspect]
     Active Substance: AZITHROMYCIN ANHYDROUS
     Indication: GRAFT VERSUS HOST DISEASE IN LUNG
     Route: 065
  2. GLIVEC [Suspect]
     Active Substance: IMATINIB MESYLATE
     Indication: GRAFT VERSUS HOST DISEASE IN LUNG
     Dosage: 100 MG, QD
     Route: 048
  3. FLUDARABINE [Suspect]
     Active Substance: FLUDARABINE PHOSPHATE
     Indication: GRAFT VERSUS HOST DISEASE IN LUNG
     Route: 065
     Dates: start: 201604
  4. MONTELUKAST [Concomitant]
     Active Substance: MONTELUKAST SODIUM
     Indication: GRAFT VERSUS HOST DISEASE IN LUNG
     Route: 065
  5. ALEMTUZUMAB [Concomitant]
     Active Substance: ALEMTUZUMAB
     Indication: STEM CELL TRANSPLANT
     Route: 065
  6. MYCOPHENOLATE [Suspect]
     Active Substance: MYCOPHENOLIC ACID
     Indication: GRAFT VERSUS HOST DISEASE IN LUNG
     Route: 065
  7. MELPHALAN. [Concomitant]
     Active Substance: MELPHALAN
     Indication: STEM CELL TRANSPLANT
     Route: 065

REACTIONS (8)
  - Exercise tolerance decreased [Unknown]
  - Subcutaneous emphysema [Unknown]
  - Disease progression [Unknown]
  - Pneumothorax [Unknown]
  - Blister [Unknown]
  - Graft versus host disease in lung [Unknown]
  - Dyspnoea [Unknown]
  - Drug ineffective [Unknown]
